FAERS Safety Report 5253345-X (Version None)
Quarter: 2007Q1

REPORT INFORMATION
  Report Type: 
  Country: None (occurrence: None)
  Receive Date: 20070301
  Receipt Date: 20070221
  Transmission Date: 20070707
  Serious: Yes (Death)
  Sender: FDA-Public Use
  Company Number: GB-GILEAD-2007-0011190

PATIENT
  Sex: Male

DRUGS (3)
  1. VIREAD [Suspect]
  2. HEPSERA [Suspect]
  3. ENTECAVIR [Suspect]

REACTIONS (2)
  - DRUG RESISTANCE [None]
  - VIRAL LOAD INCREASED [None]
